FAERS Safety Report 11797223 (Version 2)
Quarter: 2015Q4

REPORT INFORMATION
  Report Type: Report from Study
  Country: US (occurrence: US)
  Receive Date: 20151203
  Receipt Date: 20151227
  Transmission Date: 20160305
  Serious: Yes (Other)
  Sender: FDA-Public Use
  Company Number: US-MALLINCKRODT-T201505068

PATIENT
  Age: 67 Year
  Sex: Female

DRUGS (2)
  1. GLIPIZIDE. [Concomitant]
     Active Substance: GLIPIZIDE
     Dosage: 5 MG
  2. REPOSITORY CORTICOTROPIN INJECTION [Suspect]
     Active Substance: CORTICOTROPIN
     Indication: PROTEINURIA
     Dosage: 80 UNITS TWICE WEEKLY
     Route: 030
     Dates: start: 20151019, end: 20151209

REACTIONS (7)
  - Malaise [Recovering/Resolving]
  - Blood glucose increased [Not Recovered/Not Resolved]
  - Cough [Not Recovered/Not Resolved]
  - Renal impairment [Not Recovered/Not Resolved]
  - Drug ineffective [Not Recovered/Not Resolved]
  - Oropharyngeal pain [Not Recovered/Not Resolved]
  - Dysphonia [Not Recovered/Not Resolved]

NARRATIVE: CASE EVENT DATE: 20151019
